FAERS Safety Report 20131433 (Version 2)
Quarter: 2021Q4

REPORT INFORMATION
  Report Type: Spontaneous
  Country: AR (occurrence: AR)
  Receive Date: 20211130
  Receipt Date: 20211215
  Transmission Date: 20220304
  Serious: Yes (Hospitalization)
  Sender: FDA-Public Use
  Company Number: AR-TEVA-2021-AR-1982469

PATIENT
  Age: 11 Year

DRUGS (1)
  1. METHOTREXATE [Suspect]
     Active Substance: METHOTREXATE
     Indication: Acute lymphocytic leukaemia
     Dosage: 10 MG/M2 INFUSION
     Route: 037

REACTIONS (4)
  - Facial paralysis [Recovered/Resolved]
  - Hemiparesis [Recovered/Resolved]
  - Encephalopathy [Recovered/Resolved]
  - Neurotoxicity [Recovered/Resolved]
